FAERS Safety Report 19665399 (Version 1)
Quarter: 2021Q3

REPORT INFORMATION
  Report Type: Spontaneous
  Country: US (occurrence: US)
  Receive Date: 20210806
  Receipt Date: 20210806
  Transmission Date: 20211014
  Serious: No
  Sender: FDA-Public Use
  Company Number: US-SA-2021SA256083

PATIENT
  Sex: Male

DRUGS (6)
  1. DUPIXENT [Suspect]
     Active Substance: DUPILUMAB
     Indication: DERMATITIS ATOPIC
     Dosage: 300 MG, QOW
     Route: 058
     Dates: start: 20200901
  2. AUGMENTED BETAMETHASONE DIPROPIONATE [Concomitant]
  3. MONTELUKAST [Concomitant]
     Active Substance: MONTELUKAST SODIUM
  4. HYDROCORT [HYDROCORTISONE;NEOMYCIN SULFATE] [Concomitant]
     Active Substance: HYDROCORTISONE\NEOMYCIN SULFATE
  5. MELOXICAM. [Concomitant]
     Active Substance: MELOXICAM
  6. PREDNISONE. [Concomitant]
     Active Substance: PREDNISONE

REACTIONS (1)
  - Dermatitis atopic [Unknown]
